FAERS Safety Report 7652637-4 (Version None)
Quarter: 2011Q3

REPORT INFORMATION
  Report Type: 
  Country: None (occurrence: None)
  Receive Date: 20110803
  Receipt Date: 20110801
  Transmission Date: 20111222
  Serious: Yes (Other)
  Sender: FDA-Public Use
  Company Number: FR-BAYER-2011-067587

PATIENT
  Age: 56 Year
  Sex: Male

DRUGS (18)
  1. TIENAM [Suspect]
     Indication: INFECTION PROPHYLAXIS
     Dosage: 500 MG, QID
     Route: 042
     Dates: start: 20110611
  2. CELLCEPT [Suspect]
     Indication: STEM CELL TRANSPLANT
     Dosage: 500 MG, QID
     Route: 048
     Dates: start: 20110501
  3. NORMAL HUMAN IMMUNOGLOBULIN [Concomitant]
     Dosage: 20G 1 BOTTLE PER WEEK
     Route: 042
  4. VANCOMYCIN [Concomitant]
     Dosage: 1750 MG, QD
     Route: 042
     Dates: start: 20110425
  5. GANCICLOVIR SODIUM [Suspect]
     Indication: INFECTION PROPHYLAXIS
     Dosage: 420 MG, BID
     Route: 042
  6. VFEND [Suspect]
     Indication: INFECTION PROPHYLAXIS
     Dosage: 400 MG, BID
     Route: 048
     Dates: start: 20110425
  7. IMOVANE [Concomitant]
     Dosage: 7.5 MG, QD
     Route: 048
  8. PENTACARINAT [Concomitant]
     Dosage: 300MG 1 AEROSOL PER WEEK
     Route: 055
  9. MYCOSTATIN [Concomitant]
     Dosage: 2 BOTTLES PER DAY
     Route: 048
     Dates: start: 20110425
  10. INNOHEP [Concomitant]
     Dosage: 14000 IU, QD
     Route: 058
  11. URSOLVAN-200 [Concomitant]
     Dosage: 600 MG, BID
     Route: 048
     Dates: start: 20110503
  12. IDARAC [Concomitant]
     Dosage: 200 MG, TID
     Route: 048
  13. CIPROFLOXACIN [Suspect]
     Indication: INFECTION PROPHYLAXIS
     Dosage: 400 MG, BID
     Route: 042
     Dates: start: 20110611
  14. GELOX [Concomitant]
     Dosage: 3 PACKETS PER DAY
     Route: 048
  15. NEORAL [Suspect]
     Indication: STEM CELL TRANSPLANT
     Dosage: 175 MG, BID
     Route: 048
     Dates: start: 20110501
  16. ACUPAN [Suspect]
     Indication: PAIN
     Dosage: AS NEEDED
     Route: 042
  17. OMEPRAZOLE [Concomitant]
     Dosage: 20 MG, QD
     Route: 048
     Dates: start: 20110528
  18. AMLODIPINE BESYLATE [Concomitant]
     Dosage: 10 MG, QD
     Route: 048

REACTIONS (1)
  - PETIT MAL EPILEPSY [None]
